FAERS Safety Report 16473230 (Version 1)
Quarter: 2019Q2

REPORT INFORMATION
  Report Type: Spontaneous
  Country: US (occurrence: US)
  Receive Date: 20190625
  Receipt Date: 20190625
  Transmission Date: 20190711
  Serious: Yes (Other)
  Sender: FDA-Public Use
  Company Number: US-GLAXOSMITHKLINE-US2019AMR111125

PATIENT
  Sex: Female

DRUGS (1)
  1. BENLYSTA [Suspect]
     Active Substance: BELIMUMAB
     Indication: SYSTEMIC LUPUS ERYTHEMATOSUS
     Dosage: UNK
     Route: 065

REACTIONS (7)
  - Immune thrombocytopenic purpura [Recovering/Resolving]
  - Neutropenia [Unknown]
  - Cytopenia [Unknown]
  - Immune system disorder [Unknown]
  - Rash [Unknown]
  - Pyrexia [Unknown]
  - Neutrophil count abnormal [Recovered/Resolved]
